FAERS Safety Report 9749866 (Version 3)
Quarter: 2014Q1

REPORT INFORMATION
  Report Type: Spontaneous
  Country: EC (occurrence: EC)
  Receive Date: 20131212
  Receipt Date: 20140109
  Transmission Date: 20141002
  Serious: Yes (Other)
  Sender: FDA-Public Use
  Company Number: EC-PFIZER INC-2013353893

PATIENT
  Age: 67 Year
  Sex: Female

DRUGS (1)
  1. CELEBREX [Suspect]
     Indication: PAIN
     Dosage: 200 MG, UNK
     Route: 048
     Dates: start: 2011, end: 201310

REACTIONS (1)
  - Gallbladder disorder [Recovered/Resolved]
